FAERS Safety Report 6103073-3 (Version None)
Quarter: 2009Q1

REPORT INFORMATION
  Report Type: 
  Country: None (occurrence: None)
  Receive Date: 20090305
  Receipt Date: 20090227
  Transmission Date: 20090719
  Serious: Yes (Other)
  Sender: FDA-Public Use
  Company Number: NI-JNJFOC-20090205223

PATIENT
  Sex: Male
  Weight: 85 kg

DRUGS (4)
  1. RISPERDAL [Suspect]
     Dosage: 1 MG IN THE MORNING AND 2 MG IN THE EVENING
     Route: 048
  2. RISPERDAL [Suspect]
     Indication: SCHIZOPHRENIA
     Route: 048
  3. FLUOXETINE [Concomitant]
     Indication: DEPRESSION
     Route: 048
  4. FLUOXETINE [Concomitant]
     Indication: SCHIZOPHRENIA
     Route: 048

REACTIONS (5)
  - CONDITION AGGRAVATED [None]
  - DEPRESSION [None]
  - HEPATITIS [None]
  - PSYCHOTIC DISORDER [None]
  - TRANSAMINASES DECREASED [None]
